FAERS Safety Report 8120681-9 (Version None)
Quarter: 2012Q1

REPORT INFORMATION
  Report Type: 
  Country: None (occurrence: None)
  Receive Date: 20120207
  Receipt Date: 20120131
  Transmission Date: 20120608
  Serious: Yes (Other)
  Sender: FDA-Public Use
  Company Number: JP-ROCHE-1033051

PATIENT
  Sex: Female
  Weight: 41 kg

DRUGS (9)
  1. TAMIFLU [Suspect]
     Indication: INFLUENZA
     Route: 048
     Dates: start: 20120104, end: 20120104
  2. PRAVASTATIN SODIUM [Concomitant]
     Indication: DYSLIPIDAEMIA
     Route: 048
     Dates: start: 20100907, end: 20120106
  3. ACETAMINOPHEN [Concomitant]
     Indication: PYREXIA
     Route: 048
     Dates: start: 20120105
  4. CHLORPROMAZINE HCL [Concomitant]
     Indication: SCHIZOPHRENIA
     Route: 048
     Dates: start: 20100126, end: 20120106
  5. TAMIFLU [Suspect]
     Route: 048
     Dates: start: 20120105, end: 20120108
  6. TAMIFLU [Suspect]
     Route: 048
     Dates: start: 20120109, end: 20120109
  7. HALOPERIDOL [Concomitant]
     Indication: SCHIZOPHRENIA
     Route: 048
     Dates: start: 20050920, end: 20120106
  8. DANTRIUM [Concomitant]
     Route: 048
     Dates: start: 20120106, end: 20120107
  9. DANTRIUM [Concomitant]
     Route: 042
     Dates: start: 20120106, end: 20120107

REACTIONS (1)
  - NEUROLEPTIC MALIGNANT SYNDROME [None]
